FAERS Safety Report 11649732 (Version 1)
Quarter: 2015Q4

REPORT INFORMATION
  Report Type: Spontaneous
  Country: CA (occurrence: CA)
  Receive Date: 20151021
  Receipt Date: 20151021
  Transmission Date: 20160304
  Serious: Yes (Other)
  Sender: FDA-Public Use
  Company Number: CA-TEVA-601578ACC

PATIENT
  Sex: Female

DRUGS (1)
  1. BACLOFEN. [Suspect]
     Active Substance: BACLOFEN
     Indication: PRODUCT USED FOR UNKNOWN INDICATION
     Route: 065

REACTIONS (11)
  - Confusional state [Unknown]
  - Fatigue [Unknown]
  - Memory impairment [Unknown]
  - Mood swings [Unknown]
  - Mental disorder [Unknown]
  - Loss of consciousness [Unknown]
  - Somnolence [Unknown]
  - Dementia Alzheimer^s type [Unknown]
  - Asthenia [Unknown]
  - Headache [Unknown]
  - Dizziness [Unknown]
